FAERS Safety Report 9145428 (Version 1)
Quarter: 2013Q1

REPORT INFORMATION
  Report Type: Spontaneous
  Country: US (occurrence: None)
  Receive Date: 20130226
  Receipt Date: 20130226
  Transmission Date: 20140127
  Serious: Yes (Other)
  Sender: FDA-Public Use
  Company Number: None

PATIENT
  Sex: Female

DRUGS (1)
  1. EPOGEN [Suspect]
     Dosage: 20,000UNITS WEEKLY SUBQ
     Route: 058
     Dates: start: 20130211

REACTIONS (1)
  - Local swelling [None]
